FAERS Safety Report 12638439 (Version 1)
Quarter: 2016Q3

REPORT INFORMATION
  Report Type: Spontaneous
  Country: US (occurrence: US)
  Receive Date: 20160809
  Receipt Date: 20160809
  Transmission Date: 20161109
  Serious: No
  Sender: FDA-Public Use
  Company Number: US-SA-2016SA128181

PATIENT
  Age: 72 Year
  Sex: Female

DRUGS (19)
  1. LEVOCETIRIZINE DIHYDROCHLORIDE. [Concomitant]
     Active Substance: LEVOCETIRIZINE DIHYDROCHLORIDE
  2. PRALUENT [Suspect]
     Active Substance: ALIROCUMAB
     Indication: HYPERCHOLESTEROLAEMIA
     Route: 058
     Dates: start: 2015
  3. VALSARTAN. [Concomitant]
     Active Substance: VALSARTAN
  4. ALIROCUMAB PREFILLED PEN [Concomitant]
     Active Substance: ALIROCUMAB
     Indication: HYPERCHOLESTEROLAEMIA
     Dates: start: 2015
  5. DOCOSAHEXANOIC ACID [Concomitant]
  6. MAGNESIUM GLUCONATE [Concomitant]
     Active Substance: MAGNESIUM GLUCONATE
  7. FOLIC ACID. [Concomitant]
     Active Substance: FOLIC ACID
  8. VITAMIN B12 [Concomitant]
     Active Substance: CYANOCOBALAMIN
  9. COENZYME Q10 [Concomitant]
     Active Substance: UBIDECARENONE
  10. CORAL CALCIUM [Concomitant]
  11. VITAMIN D [Concomitant]
     Active Substance: CHOLECALCIFEROL
  12. TRIPLEFLEX [Concomitant]
  13. ST. JOHN^S WORT [Concomitant]
     Active Substance: ST. JOHN^S WORT
  14. BIOTIN [Concomitant]
     Active Substance: BIOTIN
  15. ESTRADIOL. [Concomitant]
     Active Substance: ESTRADIOL
  16. CARNITINE HYDROCHLORIDE [Concomitant]
     Dosage: L-CARNITINE HYDROCHLORIDE
  17. OXYBUTYNIN CHLORIDE. [Concomitant]
     Active Substance: OXYBUTYNIN CHLORIDE
  18. KRILL OIL [Concomitant]
     Active Substance: DIETARY SUPPLEMENT
     Dosage: PLUS
  19. L-ARGININE [Concomitant]
     Active Substance: ARGININE

REACTIONS (1)
  - Blood sodium decreased [Unknown]
